FAERS Safety Report 15578782 (Version 2)
Quarter: 2018Q4

REPORT INFORMATION
  Report Type: Spontaneous
  Country: US (occurrence: US)
  Receive Date: 20181102
  Receipt Date: 20181127
  Transmission Date: 20190205
  Serious: No
  Sender: FDA-Public Use
  Company Number: US-PFIZER INC-2018437694

PATIENT
  Age: 55 Year
  Sex: Female
  Weight: 58.6 kg

DRUGS (4)
  1. LYRICA [Suspect]
     Active Substance: PREGABALIN
     Indication: FIBROMYALGIA
     Dosage: 100 MG, 3X/DAY
     Route: 048
     Dates: start: 2011
  2. LYRICA [Suspect]
     Active Substance: PREGABALIN
     Indication: PAIN
     Dosage: LESS THAN PRESCRIBED
     Route: 048
     Dates: start: 201810, end: 20181020
  3. LYRICA [Suspect]
     Active Substance: PREGABALIN
     Indication: RAYNAUD^S PHENOMENON
     Dosage: 100 MG, 3X/DAY
     Route: 048
     Dates: start: 20181021
  4. LYRICA [Suspect]
     Active Substance: PREGABALIN
     Dosage: LESS THAN PRESCRIBED
     Route: 048
     Dates: start: 20181030, end: 20181101

REACTIONS (6)
  - Withdrawal syndrome [Not Recovered/Not Resolved]
  - Abdominal pain [Not Recovered/Not Resolved]
  - Headache [Recovered/Resolved]
  - Dysaesthesia [Not Recovered/Not Resolved]
  - Intentional product use issue [Unknown]
  - Nausea [Recovering/Resolving]

NARRATIVE: CASE EVENT DATE: 201810
